FAERS Safety Report 6552400-1 (Version None)
Quarter: 2010Q1

REPORT INFORMATION
  Report Type: 
  Country: None (occurrence: None)
  Receive Date: 20100126
  Receipt Date: 20100122
  Transmission Date: 20100710
  Serious: Yes (Other)
  Sender: FDA-Public Use
  Company Number: GR-PFIZER INC-2010009383

PATIENT
  Age: 70 Year
  Sex: Female

DRUGS (1)
  1. XALATAN [Suspect]
     Indication: OPEN ANGLE GLAUCOMA
     Dosage: UNK
     Route: 047
     Dates: start: 20050101

REACTIONS (4)
  - ANGLE CLOSURE GLAUCOMA [None]
  - CATARACT OPERATION [None]
  - INFLAMMATION [None]
  - INTRAOCULAR PRESSURE INCREASED [None]
